FAERS Safety Report 8056652-0 (Version None)
Quarter: 2012Q1

REPORT INFORMATION
  Report Type: 
  Country: None (occurrence: None)
  Receive Date: 20120119
  Receipt Date: 20120116
  Transmission Date: 20120608
  Serious: Yes (Death)
  Sender: FDA-Public Use
  Company Number: DE-ABBOTT-11P-062-0872089-00

PATIENT
  Age: 70 Year
  Sex: Male
  Weight: 65 kg

DRUGS (2)
  1. LEUPROLIDE ACETATE [Suspect]
     Indication: TRANSITIONAL CELL CARCINOMA
  2. LEUPROLIDE ACETATE [Suspect]
     Indication: PROSTATE CANCER
     Route: 058
     Dates: start: 20100906

REACTIONS (4)
  - RENAL FAILURE [None]
  - ACUTE INTERSTITIAL PNEUMONITIS [None]
  - BRONCHITIS [None]
  - RESPIRATORY FAILURE [None]
